FAERS Safety Report 6342899-8 (Version None)
Quarter: 2009Q3

REPORT INFORMATION
  Report Type: 
  Country: None (occurrence: None)
  Receive Date: 20090908
  Receipt Date: 20090824
  Transmission Date: 20100115
  Serious: Yes (Death, Other)
  Sender: FDA-Public Use
  Company Number: GB-ROCHE-653221

PATIENT

DRUGS (6)
  1. DACLIZUMAB [Suspect]
     Indication: GRAFT VERSUS HOST DISEASE
     Dosage: GIVEN ON DAYS 1, 4, 8, 15 AND 22
     Route: 042
  2. INFLIXIMAB [Suspect]
     Indication: GRAFT VERSUS HOST DISEASE
     Dosage: GIVEN ON DAYS 1, 8, 15 AND 22
     Route: 042
  3. ACYCLOVIR [Concomitant]
     Indication: PROPHYLAXIS
  4. COTRIM [Concomitant]
     Indication: PROPHYLAXIS
  5. GRANULOCYTE MACROPHAGE COLONY-STIMULATING FACTOR [Concomitant]
  6. ITRACONAZOLE [Concomitant]
     Indication: PROPHYLAXIS

REACTIONS (2)
  - ASPERGILLOSIS [None]
  - DRUG INEFFECTIVE FOR UNAPPROVED INDICATION [None]
